FAERS Safety Report 10483611 (Version 1)
Quarter: 2014Q3

REPORT INFORMATION
  Report Type: Spontaneous
  Country: US (occurrence: None)
  Receive Date: 20140929
  Receipt Date: 20140929
  Transmission Date: 20150326
  Serious: Yes (Hospitalization, Other)
  Sender: FDA-Public Use
  Company Number: None

PATIENT
  Age: 61 Year
  Sex: Female
  Weight: 58.97 kg

DRUGS (8)
  1. LEVOTHYROXINE [Concomitant]
     Active Substance: LEVOTHYROXINE
  2. LANTUS [Concomitant]
     Active Substance: INSULIN GLARGINE
  3. EFFEXOR [Suspect]
     Active Substance: VENLAFAXINE HYDROCHLORIDE
     Indication: POST-TRAUMATIC STRESS DISORDER
     Route: 048
     Dates: start: 20140509
  4. EFFEXOR [Suspect]
     Active Substance: VENLAFAXINE HYDROCHLORIDE
     Indication: ANXIETY
     Route: 048
     Dates: start: 20140509
  5. ATORVASTATIN [Concomitant]
     Active Substance: ATORVASTATIN
  6. EFFEXOR [Suspect]
     Active Substance: VENLAFAXINE HYDROCHLORIDE
     Indication: DEPRESSION
     Route: 048
     Dates: start: 20140509
  7. LISINOPRIL. [Concomitant]
     Active Substance: LISINOPRIL
  8. NOVOLOG [Concomitant]
     Active Substance: INSULIN ASPART

REACTIONS (14)
  - Diarrhoea [None]
  - Vomiting [None]
  - Anxiety [None]
  - Headache [None]
  - Tremor [None]
  - Dizziness [None]
  - Hyperhidrosis [None]
  - Suicidal ideation [None]
  - Abnormal dreams [None]
  - Dysacusis [None]
  - Impaired work ability [None]
  - Somnolence [None]
  - Dry mouth [None]
  - Sexual dysfunction [None]

NARRATIVE: CASE EVENT DATE: 20140806
